FAERS Safety Report 6176889-5 (Version None)
Quarter: 2009Q2

REPORT INFORMATION
  Report Type: 
  Country: None (occurrence: None)
  Receive Date: 20090501
  Receipt Date: 20081211
  Transmission Date: 20091009
  Serious: Yes (Hospitalization)
  Sender: FDA-Public Use
  Company Number: US-ALEXION-A200800356

PATIENT
  Sex: Male

DRUGS (6)
  1. SOLIRIS [Suspect]
     Indication: PAROXYSMAL NOCTURNAL HAEMOGLOBINURIA
     Dates: end: 20080818
  2. SOLIRIS [Suspect]
     Dosage: 600 MG, UNK
     Dates: start: 20081120
  3. LOVENOX [Concomitant]
  4. INSULIN [Concomitant]
  5. BACTRIM [Concomitant]
  6. DOXYCYCLINE [Concomitant]

REACTIONS (3)
  - BUDD-CHIARI SYNDROME [None]
  - PROSTATITIS [None]
  - URINARY TRACT INFECTION [None]
